FAERS Safety Report 16396600 (Version 2)
Quarter: 2019Q2

REPORT INFORMATION
  Report Type: Report from Study
  Country: CH (occurrence: CH)
  Receive Date: 20190606
  Receipt Date: 20190613
  Transmission Date: 20190711
  Serious: Yes (Hospitalization)
  Sender: FDA-Public Use
  Company Number: CH-BRISTOL-MYERS SQUIBB COMPANY-BMS-2019-054277

PATIENT
  Age: 70 Year
  Sex: Male
  Weight: 89.1 kg

DRUGS (4)
  1. NIVOLUMAB [Suspect]
     Active Substance: NIVOLUMAB
     Indication: NEOPLASM
     Dosage: 240 MILLIGRAM, Q2WK
     Route: 042
     Dates: start: 20190327, end: 20190522
  2. IPILIMUMAB [Suspect]
     Active Substance: IPILIMUMAB
     Indication: NEOPLASM
     Dosage: 93 MILLIGRAM, Q6WK
     Route: 042
     Dates: start: 20190327, end: 20190508
  3. ASPIRIN. [Suspect]
     Active Substance: ASPIRIN
     Indication: NEOPLASM
     Dosage: 300 UNK, QD
     Route: 048
     Dates: start: 20190326, end: 20190527
  4. CYCLOPHOSPHAMIDE. [Suspect]
     Active Substance: CYCLOPHOSPHAMIDE
     Indication: NEOPLASM
     Dosage: 422 MILLIGRAM, Q2WK
     Route: 042
     Dates: start: 20190312, end: 20190521

REACTIONS (1)
  - Colitis [Not Recovered/Not Resolved]

NARRATIVE: CASE EVENT DATE: 20190528
